FAERS Safety Report 19730329 (Version 2)
Quarter: 2022Q1

REPORT INFORMATION
  Report Type: Spontaneous
  Country: US (occurrence: None)
  Receive Date: 20210820
  Receipt Date: 20220210
  Transmission Date: 20220423
  Serious: Yes (Hospitalization, Other)
  Sender: FDA-Public Use
  Company Number: 2021A686227

PATIENT
  Age: 62 Year
  Sex: Female
  Weight: 104.3 kg

DRUGS (39)
  1. NEXIUM [Suspect]
     Active Substance: ESOMEPRAZOLE MAGNESIUM
     Indication: Gastrooesophageal reflux disease
     Route: 048
     Dates: start: 2002, end: 2020
  2. NEXIUM [Suspect]
     Active Substance: ESOMEPRAZOLE MAGNESIUM
     Indication: Gastrooesophageal reflux disease
     Dosage: GENERIC
     Route: 065
  3. NEXIUM 24HR [Suspect]
     Active Substance: ESOMEPRAZOLE MAGNESIUM
     Indication: Gastrooesophageal reflux disease
     Route: 048
     Dates: start: 2002, end: 2020
  4. NEXIUM 24HR [Suspect]
     Active Substance: ESOMEPRAZOLE MAGNESIUM
     Indication: Gastrooesophageal reflux disease
     Dosage: DOSAGE AS RECOMMENDED
     Route: 048
     Dates: start: 2014, end: 2020
  5. PRILOSEC [Suspect]
     Active Substance: OMEPRAZOLE MAGNESIUM
     Indication: Gastrooesophageal reflux disease
     Route: 048
     Dates: start: 2000
  6. PREVACID [Suspect]
     Active Substance: LANSOPRAZOLE
     Indication: Gastrooesophageal reflux disease
     Route: 065
     Dates: start: 2000
  7. PROTONIX [Suspect]
     Active Substance: PANTOPRAZOLE SODIUM
     Indication: Gastrooesophageal reflux disease
     Dosage: 40.0MG UNKNOWN
     Route: 065
     Dates: start: 2020
  8. PROTONIX [Suspect]
     Active Substance: PANTOPRAZOLE SODIUM
     Indication: Gastrooesophageal reflux disease
     Dosage: GENERIC40.0MG UNKNOWN
     Route: 065
     Dates: start: 2016, end: 2020
  9. LOSARTAN [Concomitant]
     Active Substance: LOSARTAN
     Indication: Hypertension
  10. ROSUVASTATIN [Concomitant]
     Active Substance: ROSUVASTATIN
     Indication: Hyperlipidaemia
  11. CLOPIDOGREL [Concomitant]
     Active Substance: CLOPIDOGREL BISULFATE
  12. ATORVASTATIN [Concomitant]
     Active Substance: ATORVASTATIN
  13. TORSEMIDE [Concomitant]
     Active Substance: TORSEMIDE
  14. CARVEDILOL [Concomitant]
     Active Substance: CARVEDILOL
  15. DOXAZOSIN [Concomitant]
     Active Substance: DOXAZOSIN MESYLATE
  16. LOVENOX [Concomitant]
     Active Substance: ENOXAPARIN SODIUM
  17. NOVOLOG [Concomitant]
     Active Substance: INSULIN ASPART
  18. PROPOFOL [Concomitant]
     Active Substance: PROPOFOL
  19. LOPRESSOR [Concomitant]
     Active Substance: METOPROLOL TARTRATE
  20. CEFEPIME [Concomitant]
     Active Substance: CEFEPIME HYDROCHLORIDE
  21. MIDAZOLAM [Concomitant]
     Active Substance: MIDAZOLAM
  22. LASIX [Concomitant]
     Active Substance: FUROSEMIDE
  23. ASPIRIN [Concomitant]
     Active Substance: ASPIRIN
  24. HYDRALAZINE [Concomitant]
     Active Substance: HYDRALAZINE HYDROCHLORIDE
  25. CYCLOBENZAPRINE [Concomitant]
     Active Substance: CYCLOBENZAPRINE
  26. ZOFRAN [Concomitant]
     Active Substance: ONDANSETRON HYDROCHLORIDE
  27. ALBUTEROL [Concomitant]
     Active Substance: ALBUTEROL
  28. VALSARTAN [Concomitant]
     Active Substance: VALSARTAN
  29. IBUPROFEN [Concomitant]
     Active Substance: IBUPROFEN
  30. MONTELUKAST [Concomitant]
     Active Substance: MONTELUKAST SODIUM
  31. CLARINEX [Concomitant]
     Active Substance: DESLORATADINE
  32. AMBIEN [Concomitant]
     Active Substance: ZOLPIDEM TARTRATE
  33. BYSTOLIC [Concomitant]
     Active Substance: NEBIVOLOL HYDROCHLORIDE
  34. CLONIDINE [Concomitant]
     Active Substance: CLONIDINE
  35. BREO ELLIPTA [Concomitant]
     Active Substance: FLUTICASONE FUROATE\VILANTEROL TRIFENATATE
  36. VASOTEC [Concomitant]
     Active Substance: ENALAPRIL MALEATE
  37. LYRICA [Concomitant]
     Active Substance: PREGABALIN
  38. DIOVAN [Concomitant]
     Active Substance: VALSARTAN
  39. CELEBREX [Concomitant]
     Active Substance: CELECOXIB

REACTIONS (4)
  - Chronic kidney disease [Not Recovered/Not Resolved]
  - Acute kidney injury [Not Recovered/Not Resolved]
  - Renal failure [Unknown]
  - Gastrooesophageal reflux disease [Not Recovered/Not Resolved]

NARRATIVE: CASE EVENT DATE: 20120101
